FAERS Safety Report 4378719-0 (Version None)
Quarter: 2004Q2

REPORT INFORMATION
  Report Type: 
  Country: None (occurrence: None)
  Receive Date: 20040616
  Receipt Date: 20040610
  Transmission Date: 20050107
  Serious: Yes (Other)
  Sender: FDA-Public Use
  Company Number: PHBS2004GR07710

PATIENT
  Age: 70 Year
  Sex: Female

DRUGS (3)
  1. EXELON [Suspect]
     Indication: MEMORY IMPAIRMENT
     Route: 048
  2. OSTOPOR [Suspect]
     Dosage: 0.5 CC/D
     Route: 065
  3. ZYRTEC [Concomitant]
     Indication: GASTROINTESTINAL DISORDER
     Route: 065

REACTIONS (3)
  - DRUG INTERACTION [None]
  - GASTROINTESTINAL DISORDER [None]
  - LARYNGEAL OEDEMA [None]
